FAERS Safety Report 10557818 (Version 1)
Quarter: 2014Q4

REPORT INFORMATION
  Report Type: Spontaneous
  Country: US (occurrence: None)
  Receive Date: 20141030
  Receipt Date: 20141030
  Transmission Date: 20150529
  Serious: Yes (Other)
  Sender: FDA-Public Use
  Company Number: None

PATIENT
  Age: 52 Year
  Sex: Male
  Weight: 60.2 kg

DRUGS (9)
  1. DEXAMETHASONE. [Concomitant]
     Active Substance: DEXAMETHASONE
  2. METHOTREXATE [Concomitant]
     Active Substance: METHOTREXATE
  3. MESNA. [Concomitant]
     Active Substance: MESNA
  4. IFOSFAMIDE. [Concomitant]
     Active Substance: IFOSFAMIDE
  5. G-CSF [Concomitant]
     Active Substance: FILGRASTIM
  6. ERWINASE [Suspect]
     Active Substance: ASPARAGINASE ERWINIA CHRYSANTHEMI
     Indication: NATURAL KILLER-CELL LYMPHOBLASTIC LYMPHOMA
     Dosage: 6,000 UNITS/M2?MWF?INTRAMUSCULAR?
     Route: 030
     Dates: start: 20141018, end: 20141029
  7. ELSPAR [Suspect]
     Active Substance: ASPARAGINASE
     Indication: NATURAL KILLER-CELL LYMPHOBLASTIC LYMPHOMA
     Dosage: 6,000 UNITS/M2?INTRAVENOUS
     Route: 042
  8. ETOPOSIDE. [Concomitant]
     Active Substance: ETOPOSIDE
  9. LEUCOVORIN [Concomitant]
     Active Substance: LEUCOVORIN

REACTIONS (6)
  - Circumstance or information capable of leading to medication error [None]
  - Incorrect dose administered [None]
  - Drug prescribing error [None]
  - Drug dispensing error [None]
  - Incorrect route of drug administration [None]
  - Product label issue [None]

NARRATIVE: CASE EVENT DATE: 20140918
